FAERS Safety Report 7956804 (Version 7)
Quarter: 2013Q2

REPORT INFORMATION
  Report Type: Spontaneous
  Country: US (occurrence: US)
  Receive Date: 20110524
  Receipt Date: 20130530
  Transmission Date: 20140414
  Serious: Yes (Other)
  Sender: FDA-Public Use
  Company Number: US-US-EMD SERONO, INC.-7060105

PATIENT
  Age: 55 Year
  Sex: Male
  Weight: 88 kg

DRUGS (5)
  1. REBIF [Suspect]
     Indication: MULTIPLE SCLEROSIS
     Route: 058
     Dates: start: 20070517, end: 20110316
  2. REBIF [Suspect]
     Route: 058
     Dates: start: 20111019, end: 20111114
  3. REBIF [Suspect]
     Route: 058
     Dates: start: 20120507, end: 201207
  4. REBIF [Suspect]
     Route: 058
     Dates: start: 20130218
  5. ADVIL                              /00109201/ [Concomitant]
     Indication: PREMEDICATION

REACTIONS (3)
  - Non-Hodgkin^s lymphoma stage III [Recovered/Resolved]
  - Feeling abnormal [Unknown]
  - Gait disturbance [Unknown]
